FAERS Safety Report 11067606 (Version 2)
Quarter: 2015Q2

REPORT INFORMATION
  Report Type: Spontaneous
  Country: US (occurrence: US)
  Receive Date: 20150427
  Receipt Date: 20150505
  Transmission Date: 20150821
  Serious: Yes (Other)
  Sender: FDA-Public Use
  Company Number: US-BEH-2015048839

PATIENT
  Age: 54 Year
  Sex: Female
  Weight: 58 kg

DRUGS (17)
  1. LIDOCAINE. [Concomitant]
     Active Substance: LIDOCAINE
  2. DESLORATADINE. [Concomitant]
     Active Substance: DESLORATADINE
  3. DIPHENHYDRAMINE [Concomitant]
     Active Substance: DIPHENHYDRAMINE
  4. FLONASE [Concomitant]
     Active Substance: FLUTICASONE PROPIONATE
  5. ADVAIR HFA [Concomitant]
     Active Substance: FLUTICASONE PROPIONATE\SALMETEROL XINAFOATE
  6. HIZENTRA [Suspect]
     Active Substance: HUMAN IMMUNOGLOBULIN G
     Dosage: 1 GM 5 ML VIAL; 3 GM WEEKLY
     Route: 058
  7. ACETAMINOPHEN. [Concomitant]
     Active Substance: ACETAMINOPHEN
  8. HIZENTRA [Suspect]
     Active Substance: HUMAN IMMUNOGLOBULIN G
     Indication: HYPOGAMMAGLOBULINAEMIA
     Dosage: 2 GM 10 ML VIAL; 3 GM WEEKLY
     Route: 058
  9. LEVAQUIN [Concomitant]
     Active Substance: LEVOFLOXACIN
  10. HIZENTRA [Suspect]
     Active Substance: HUMAN IMMUNOGLOBULIN G
     Route: 058
     Dates: start: 20150202
  11. ZANTAC [Concomitant]
     Active Substance: RANITIDINE HYDROCHLORIDE
  12. HIZENTRA [Suspect]
     Active Substance: HUMAN IMMUNOGLOBULIN G
     Route: 058
     Dates: start: 20150202
  13. ACCOLATE [Concomitant]
     Active Substance: ZAFIRLUKAST
  14. EPIPEN [Concomitant]
     Active Substance: EPINEPHRINE
  15. ATROVENT HFA [Concomitant]
     Active Substance: IPRATROPIUM BROMIDE
  16. MULTIVITAMIN [Concomitant]
     Active Substance: VITAMINS
  17. CITRACAL D [Concomitant]

REACTIONS (10)
  - Infusion site swelling [Recovered/Resolved]
  - Injection site irritation [Recovered/Resolved]
  - Infusion site inflammation [Recovered/Resolved]
  - Urticaria [Recovered/Resolved]
  - Urticaria [Unknown]
  - Rash [Recovered/Resolved]
  - Pneumonia [Unknown]
  - Upper respiratory tract infection [Recovered/Resolved]
  - Injection site erythema [Recovered/Resolved]
  - Headache [Recovered/Resolved]

NARRATIVE: CASE EVENT DATE: 20150218
